FAERS Safety Report 17522881 (Version 1)
Quarter: 2020Q1

REPORT INFORMATION
  Report Type: Spontaneous
  Country: GB (occurrence: GB)
  Receive Date: 20200310
  Receipt Date: 20200310
  Transmission Date: 20200409
  Serious: Yes (Hospitalization, Disabling, Other)
  Sender: FDA-Public Use
  Company Number: GB-BAYER-2020-035163

PATIENT
  Age: 30 Year
  Sex: Male
  Weight: 72 kg

DRUGS (1)
  1. CIPROXIN 500 MG [Suspect]
     Active Substance: CIPROFLOXACIN
     Indication: URINARY TRACT INFECTION
     Dosage: 500 MG
     Route: 048
     Dates: start: 20181120, end: 20181127

REACTIONS (16)
  - Mental disorder [Unknown]
  - Candida infection [Unknown]
  - Asthenia [Unknown]
  - Vomiting projectile [Recovered/Resolved]
  - Arthralgia [Not Recovered/Not Resolved]
  - Malaise [Unknown]
  - Fatigue [Recovering/Resolving]
  - Food allergy [Not Recovered/Not Resolved]
  - Gastrointestinal inflammation [Unknown]
  - Dizziness [Unknown]
  - Glutathione decreased [Unknown]
  - Panic attack [Recovering/Resolving]
  - Diarrhoea [Recovering/Resolving]
  - Anxiety [Recovering/Resolving]
  - Magnesium deficiency [Unknown]
  - Feeling of despair [Unknown]

NARRATIVE: CASE EVENT DATE: 20181123
